FAERS Safety Report 7700313-1 (Version None)
Quarter: 2011Q3

REPORT INFORMATION
  Report Type: 
  Country: None (occurrence: None)
  Receive Date: 20110822
  Receipt Date: 20110812
  Transmission Date: 20111222
  Serious: Yes (Other)
  Sender: FDA-Public Use
  Company Number: PHHY2009JP22250

PATIENT
  Sex: Female
  Weight: 42 kg

DRUGS (8)
  1. CELLCEPT [Suspect]
     Indication: RENAL TRANSPLANT
     Dosage: 1500 MG, UNK
     Route: 048
     Dates: start: 20070215
  2. PREDNISOLONE [Concomitant]
     Indication: RENAL TRANSPLANT
     Dosage: 60 MG,
     Route: 048
     Dates: start: 20070220
  3. RABEPRAZOLE SODIUM [Concomitant]
     Indication: PROPHYLAXIS AGAINST GASTROINTESTINAL ULCER
     Dosage: 1 DOSE DAILY
     Route: 048
     Dates: start: 20070225
  4. NEORAL [Suspect]
     Dosage: 300 MG, QD
     Route: 048
     Dates: start: 20070220
  5. METHYLPREDNISOLONE SODIUM SUCCINATE [Concomitant]
     Indication: RENAL TRANSPLANT
     Dosage: 500 MG, UNK
     Route: 042
     Dates: start: 20070221, end: 20070221
  6. SIMULECT [Suspect]
     Dosage: 20 MG, UNK
     Dates: start: 20070225, end: 20070225
  7. BISOPROLOL FUMARATE [Concomitant]
     Indication: HYPERTENSION
     Dosage: 2.5 MG, UNK
     Route: 048
     Dates: start: 20070221
  8. SIMULECT [Suspect]
     Indication: RENAL TRANSPLANT
     Dosage: 20 MG, UNK
     Route: 042
     Dates: start: 20070221

REACTIONS (1)
  - HYPERAMYLASAEMIA [None]
